FAERS Safety Report 14933231 (Version 2)
Quarter: 2018Q2

REPORT INFORMATION
  Report Type: Report from Study
  Country: IT (occurrence: IT)
  Receive Date: 20180524
  Receipt Date: 20180529
  Transmission Date: 20180711
  Serious: Yes (Other)
  Sender: FDA-Public Use
  Company Number: PHHY2018IT005865

PATIENT
  Age: 42 Year
  Sex: Male

DRUGS (1)
  1. COSENTYX [Suspect]
     Active Substance: SECUKINUMAB
     Indication: PRODUCT USED FOR UNKNOWN INDICATION
     Dosage: 300 MG, QMO
     Route: 058
     Dates: start: 20180321

REACTIONS (6)
  - Blood cholesterol increased [Unknown]
  - Mean platelet volume decreased [Unknown]
  - Blood potassium increased [Unknown]
  - Blood triglycerides increased [Unknown]
  - Low density lipoprotein increased [Unknown]
  - Azotaemia [Unknown]

NARRATIVE: CASE EVENT DATE: 20180514
